FAERS Safety Report 9382700 (Version 1)
Quarter: 2013Q3

REPORT INFORMATION
  Report Type: Spontaneous
  Country: US (occurrence: US)
  Receive Date: 20130703
  Receipt Date: 20130703
  Transmission Date: 20140515
  Serious: No
  Sender: FDA-Public Use
  Company Number: US-FOUGERA-2012FO001122

PATIENT
  Age: 90 Year
  Sex: Male
  Weight: 59.02 kg

DRUGS (10)
  1. HYDROCORTISONE [Suspect]
     Route: 061
     Dates: start: 20120523, end: 20120528
  2. DIGOXIN [Concomitant]
     Indication: CARDIAC DISORDER
     Route: 048
  3. HUMALOG INSULIN 25- 75 [Concomitant]
     Indication: DIABETES MELLITUS
     Dosage: DAILY DOSE: 13 UNITS,
     Route: 058
  4. AZOR [Concomitant]
     Indication: BLOOD PRESSURE
     Route: 048
     Dates: start: 2011
  5. AZOR [Concomitant]
     Indication: CARDIAC DISORDER
  6. LIPAZIDE [Concomitant]
     Indication: DIABETES MELLITUS
     Route: 048
     Dates: start: 2010
  7. LIPAZIDE [Concomitant]
     Route: 048
     Dates: start: 2010
  8. WARFARIN [Concomitant]
     Indication: THROMBOSIS PROPHYLAXIS
     Route: 048
  9. PRAVASTATIN [Concomitant]
     Indication: BLOOD CHOLESTEROL
     Route: 048
     Dates: start: 2009
  10. FUROSEMIDE [Concomitant]
     Indication: OEDEMA PERIPHERAL
     Route: 048
     Dates: start: 201112

REACTIONS (1)
  - Myalgia [Not Recovered/Not Resolved]
